FAERS Safety Report 19584046 (Version 1)
Quarter: 2021Q3

REPORT INFORMATION
  Report Type: Spontaneous
  Country: EG (occurrence: EG)
  Receive Date: 20210720
  Receipt Date: 20210720
  Transmission Date: 20211014
  Serious: Yes (Life-Threatening)
  Sender: FDA-Public Use
  Company Number: EG-ELI_LILLY_AND_COMPANY-EG202107006911

PATIENT
  Age: 61 Year
  Sex: Male

DRUGS (1)
  1. GEMZAR [Suspect]
     Active Substance: GEMCITABINE HYDROCHLORIDE
     Indication: LUNG NEOPLASM MALIGNANT
     Dosage: 1800 MG, OTHER (DAY 1 AND 8 OF EVERY 21 CYCLE)
     Route: 042
     Dates: start: 20210407

REACTIONS (7)
  - Vomiting [Unknown]
  - Hypochromic anaemia [Unknown]
  - Thrombocytosis [Unknown]
  - Blood urea increased [Unknown]
  - Blood glucose increased [Unknown]
  - Leukocytosis [Unknown]
  - Pleurisy [Unknown]

NARRATIVE: CASE EVENT DATE: 20210508
